FAERS Safety Report 7834041-9 (Version None)
Quarter: 2011Q4

REPORT INFORMATION
  Report Type: 
  Country: None (occurrence: None)
  Receive Date: 20111024
  Receipt Date: 20111024
  Transmission Date: 20120403
  Serious: Yes (Other)
  Sender: FDA-Public Use
  Company Number: None

PATIENT
  Age: 39 Year
  Sex: Female
  Weight: 90 kg

DRUGS (1)
  1. FERAHEME [Suspect]
     Indication: IRON DEFICIENCY ANAEMIA
     Dosage: 510MG
     Route: 042
     Dates: start: 20111020, end: 20111020

REACTIONS (5)
  - NAUSEA [None]
  - HYPERSENSITIVITY [None]
  - BACK PAIN [None]
  - CHILLS [None]
  - FLUSHING [None]
